FAERS Safety Report 5820714-6 (Version None)
Quarter: 2008Q3

REPORT INFORMATION
  Report Type: 
  Country: None (occurrence: None)
  Receive Date: 20080724
  Receipt Date: 20080314
  Transmission Date: 20090109
  Serious: No
  Sender: FDA-Public Use
  Company Number: A0715539A

PATIENT
  Age: 65 Year
  Sex: Female

DRUGS (10)
  1. AVANDIA [Suspect]
     Dosage: 4MG PER DAY
     Route: 048
     Dates: start: 20080313
  2. METFORMIN [Concomitant]
  3. GLIPIZIDE [Concomitant]
  4. LIPITOR [Concomitant]
  5. ISOSORBIDE DINITRATE [Concomitant]
  6. LISINOPRIL [Concomitant]
  7. PROTONIX [Concomitant]
  8. PLAVIX [Concomitant]
  9. ASPIRIN [Concomitant]
  10. CARVEDILOL [Concomitant]

REACTIONS (1)
  - MUSCULOSKELETAL PAIN [None]
